FAERS Safety Report 10404182 (Version 1)
Quarter: 2014Q1

REPORT INFORMATION
  Report Type: Spontaneous
  Country: US (occurrence: None)
  Receive Date: 20131226
  Receipt Date: 20131226
  Transmission Date: 20141002
  Serious: Yes (Hospitalization)
  Sender: FDA-Public Use
  Company Number: PHEH2012US003557

PATIENT
  Age: 74 Year
  Sex: Male

DRUGS (1)
  1. AFINITOR (RAD) UNKNOWN [Suspect]
     Indication: MALIGNANT NEOPLASM OF ISLETS OF LANGERHANS
     Route: 048
     Dates: start: 201103

REACTIONS (4)
  - Pneumonia [None]
  - Asthenia [None]
  - Decreased appetite [None]
  - Nausea [None]
